FAERS Safety Report 4969207-9 (Version None)
Quarter: 2006Q2

REPORT INFORMATION
  Report Type: 
  Country: None (occurrence: None)
  Receive Date: 20060405
  Receipt Date: 20060327
  Transmission Date: 20061013
  Serious: Yes (Hospitalization)
  Sender: FDA-Public Use
  Company Number: US-2006-000517

PATIENT
  Age: 34 Year
  Sex: Female
  Weight: 95 kg

DRUGS (2)
  1. YASMIN [Suspect]
     Indication: MENSTRUAL DISORDER
     Dosage: 1 TAB(S), 1X/DAY, ORAL
     Route: 048
     Dates: start: 20050501, end: 20051113
  2. SPIRONOLACTONE [Concomitant]

REACTIONS (17)
  - BLINDNESS UNILATERAL [None]
  - BLOOD PRESSURE INCREASED [None]
  - BUNDLE BRANCH BLOCK LEFT [None]
  - CEREBRAL ARTERY OCCLUSION [None]
  - CONSTIPATION [None]
  - DEPRESSION [None]
  - DYSPHAGIA [None]
  - EMOTIONAL DISTRESS [None]
  - ENCEPHALOMALACIA [None]
  - ENCEPHALOPATHY [None]
  - FEAR [None]
  - ISCHAEMIC STROKE [None]
  - NERVOUS SYSTEM DISORDER [None]
  - PAIN [None]
  - SUICIDAL IDEATION [None]
  - URINARY TRACT INFECTION [None]
  - VISUAL FIELD DEFECT [None]
